FAERS Safety Report 8979680 (Version 2)
Quarter: 2013Q1

REPORT INFORMATION
  Report Type: Report from Study
  Country: US (occurrence: US)
  Receive Date: 20121221
  Receipt Date: 20130116
  Transmission Date: 20140127
  Serious: Yes (Hospitalization, Other)
  Sender: FDA-Public Use
  Company Number: US-ASTELLAS-2012US012415

PATIENT
  Age: 51 None
  Sex: Female
  Weight: 61 kg

DRUGS (37)
  1. ERLOTINIB TABLET [Suspect]
     Indication: NON-SMALL CELL LUNG CANCER METASTATIC
     Dosage: 150 MG, UNKNOWN/D
     Route: 048
     Dates: start: 20090711
  2. ERLOTINIB TABLET [Suspect]
     Dosage: 100 MG, DAYS 2-17 OF 21D CYCLE
     Route: 048
     Dates: start: 20091230
  3. ALIMTA [Suspect]
     Indication: NON-SMALL CELL LUNG CANCER METASTATIC
     Dosage: UNK
     Route: 065
     Dates: start: 20091210, end: 20110720
  4. NASONEX [Concomitant]
     Indication: HYPERSENSITIVITY
     Dosage: 2 DF, UID/QD, PRN
     Route: 045
  5. DYAZIDE [Concomitant]
     Indication: OEDEMA
     Dosage: 1 DF, UID/QD
     Route: 065
  6. METAMUCIL                          /00029101/ [Concomitant]
     Indication: CONSTIPATION
     Dosage: UNK
     Route: 065
  7. BENEFIBER                          /00677201/ [Concomitant]
     Indication: CONSTIPATION
     Dosage: 1 DF, 2X/WK
     Route: 065
  8. ALIGN [Concomitant]
     Indication: CONSTIPATION
     Dosage: 1 DF, 2X/WK
     Route: 065
  9. VAGIFEM [Concomitant]
     Indication: MENOPAUSE
     Dosage: 0.025 MG, 2X/WK
     Route: 067
  10. VAGIFEM [Concomitant]
     Indication: ATROPHIC VULVOVAGINITIS
  11. VITAMIN B6 [Concomitant]
     Indication: BURNING SENSATION
     Dosage: UNK
     Route: 065
  12. TYLENOL /00020001/ [Concomitant]
     Indication: PAIN
     Dosage: 10 GRAIN, PRN UP TO QID
     Route: 065
  13. AMBIEN [Concomitant]
     Indication: SLEEP DISORDER
     Dosage: 2.5 MG, QHS
     Route: 065
  14. MULTI-VIT [Concomitant]
     Indication: ANAEMIA PROPHYLAXIS
     Dosage: UNK
     Route: 065
  15. FOLIC ACID [Concomitant]
     Indication: ANAEMIA PROPHYLAXIS
     Dosage: 400 UG, UID/QD
     Route: 065
  16. B12                                /00056201/ [Concomitant]
     Indication: ANAEMIA PROPHYLAXIS
     Dosage: Q 8 WKS
     Route: 030
  17. REUTERI [Concomitant]
     Indication: FUNCTIONAL GASTROINTESTINAL DISORDER
     Dosage: UNK
     Route: 065
  18. REUTERI [Concomitant]
     Indication: GASTRIC DISORDER
  19. CALCIUM [Concomitant]
     Indication: BONE DISORDER
     Dosage: UNK
     Route: 065
  20. VITAMIN D3 [Concomitant]
     Indication: BONE DISORDER
     Dosage: 1000 U, UID/QD
     Route: 065
  21. POTASSIUM [Concomitant]
     Indication: BONE DISORDER
     Dosage: UNK
     Route: 065
  22. MAGNESIUM [Concomitant]
     Indication: BONE DISORDER
     Dosage: UNK
     Route: 065
  23. OXYGEN [Concomitant]
     Indication: DYSPNOEA
     Dosage: UNK
     Route: 065
  24. SYMBICORT [Concomitant]
     Indication: WHEEZING
     Dosage: 2 DF, BID, PRN
     Route: 055
  25. SYMBICORT [Concomitant]
     Indication: COUGH
  26. CARAFATE [Concomitant]
     Indication: FUNCTIONAL GASTROINTESTINAL DISORDER
     Dosage: 10 ML, QID
     Route: 065
  27. CARAFATE [Concomitant]
     Indication: GASTRIC DISORDER
  28. ASMANEX [Concomitant]
     Indication: WHEEZING
     Dosage: UNK
     Route: 055
  29. ASMANEX [Concomitant]
     Indication: COUGH
  30. PROAIR                             /00139502/ [Concomitant]
     Indication: WHEEZING
     Dosage: UNK
     Route: 065
  31. PROAIR                             /00139502/ [Concomitant]
     Indication: COUGH
  32. SPIRIVA [Concomitant]
     Indication: ASTHMA PROPHYLAXIS
     Dosage: UNK
     Route: 065
  33. L-THYROXINE                        /00068001/ [Concomitant]
     Indication: HYPOTHYROIDISM
     Dosage: 0.375 MG, UID/QD
     Route: 065
  34. VALTREX [Concomitant]
     Indication: HERPES SIMPLEX
     Dosage: 2000 MG, Q12 HOURS
     Route: 065
  35. VALTREX [Concomitant]
     Dosage: 500 MG, BID
     Route: 065
  36. MONISTAT [Concomitant]
     Indication: FUNGAL INFECTION
     Dosage: UNK
     Route: 065
  37. CELADRIN [Concomitant]
     Indication: ARTHROPATHY
     Dosage: UNK
     Route: 065

REACTIONS (15)
  - Diarrhoea [Unknown]
  - Abdominal pain [Recovering/Resolving]
  - Rash [Unknown]
  - Uterine leiomyoma [Recovered/Resolved]
  - Campylobacter infection [Recovering/Resolving]
  - Dehydration [Recovered/Resolved]
  - Renal impairment [Recovered/Resolved]
  - Ear discomfort [Recovered/Resolved]
  - Burning sensation [Recovered/Resolved]
  - Toothache [Recovered/Resolved]
  - Migraine [Recovered/Resolved]
  - Chest discomfort [Not Recovered/Not Resolved]
  - Epistaxis [Recovered/Resolved]
  - Cystitis [Unknown]
  - Constipation [Recovered/Resolved]
